FAERS Safety Report 9931978 (Version 1)
Quarter: 2014Q1

REPORT INFORMATION
  Report Type: Spontaneous
  Country: US (occurrence: None)
  Receive Date: 20140227
  Receipt Date: 20140227
  Transmission Date: 20141002
  Serious: Yes (Disabling, Other)
  Sender: FDA-Public Use
  Company Number: None

PATIENT
  Sex: Female
  Weight: 58.97 kg

DRUGS (4)
  1. CIPROFLOXACIN HCL [Suspect]
     Indication: BACTERIAL INFECTION
     Route: 048
     Dates: start: 20131004, end: 20131006
  2. TRAMADOL [Concomitant]
  3. RABAIN [Concomitant]
  4. DAILY VITAMIN [Concomitant]

REACTIONS (1)
  - Pain in extremity [None]
